FAERS Safety Report 6939462-4 (Version None)
Quarter: 2010Q3

REPORT INFORMATION
  Report Type: 
  Country: None (occurrence: None)
  Receive Date: 20100819
  Receipt Date: 20100727
  Transmission Date: 20110219
  Serious: Yes (Other)
  Sender: FDA-Public Use
  Company Number: 016754

PATIENT
  Age: 5 Year
  Sex: Female

DRUGS (4)
  1. KEPPRA [Suspect]
  2. LAMICTIN (LAMICTIN) [Suspect]
  3. EPILIM (EPILIM) (NOT SPECIFIED) [Suspect]
  4. RIVOTRIL (RIVOTRIL) (NOT SPECIFIED) [Suspect]

REACTIONS (1)
  - PRECOCIOUS PUBERTY [None]
